FAERS Safety Report 20816666 (Version 2)
Quarter: 2022Q2

REPORT INFORMATION
  Report Type: Spontaneous
  Country: DE (occurrence: DE)
  Receive Date: 20220512
  Receipt Date: 20220516
  Transmission Date: 20220721
  Serious: Yes (Congenital Anomaly)
  Sender: FDA-Public Use
  Company Number: DE-HETERO-HET2022DE00992

PATIENT
  Sex: Female
  Weight: 3.175 kg

DRUGS (2)
  1. EMTRICITABINE\TENOFOVIR [Suspect]
     Active Substance: EMTRICITABINE\TENOFOVIR
     Indication: HIV infection
     Dosage: 445 MG, QD
     Route: 064
  2. NEVIRAPINE [Suspect]
     Active Substance: NEVIRAPINE
     Indication: HIV infection
     Dosage: 400 MG, QD
     Route: 064

REACTIONS (3)
  - Ventricular septal defect [Unknown]
  - Left-to-right cardiac shunt [Unknown]
  - Foetal exposure during pregnancy [Unknown]
